FAERS Safety Report 6928113-0 (Version None)
Quarter: 2010Q3

REPORT INFORMATION
  Report Type: 
  Country: None (occurrence: None)
  Receive Date: 20100817
  Receipt Date: 20100803
  Transmission Date: 20110219
  Serious: Yes (Disabling)
  Sender: FDA-Public Use
  Company Number: PHHY2010US43829

PATIENT
  Sex: Female
  Weight: 90.718 kg

DRUGS (10)
  1. EXTAVIA [Suspect]
     Indication: MULTIPLE SCLEROSIS
     Dosage: 0.25 MG, QOD
     Route: 058
     Dates: start: 20100501
  2. METFORMIN [Concomitant]
     Dosage: 1000 MG, DAILY
  3. LANTUS [Concomitant]
     Dosage: 45 UNITS
  4. NOVOLOG [Concomitant]
     Dosage: 8-13 UNITS
  5. LISINOPRIL [Concomitant]
     Dosage: 10 MG, DAILY
  6. CLARITIN-D [Concomitant]
     Dosage: UNK
  7. SOMA [Concomitant]
  8. MOTRIN [Concomitant]
     Dosage: UNK
  9. VICODIN [Concomitant]
     Dosage: UNK
  10. BETASERON [Concomitant]
     Dosage: UNK
     Dates: start: 20060101

REACTIONS (11)
  - ARTHRALGIA [None]
  - HEADACHE [None]
  - HYPOAESTHESIA [None]
  - INCREASED UPPER AIRWAY SECRETION [None]
  - INFLUENZA [None]
  - JOINT SWELLING [None]
  - NASAL CONGESTION [None]
  - NASOPHARYNGITIS [None]
  - OEDEMA PERIPHERAL [None]
  - PERIPHERAL VASCULAR DISORDER [None]
  - VOMITING [None]
